APPROVED DRUG PRODUCT: ORPHENGESIC FORTE
Active Ingredient: ASPIRIN; CAFFEINE; ORPHENADRINE CITRATE
Strength: 770MG;60MG;50MG
Dosage Form/Route: TABLET;ORAL
Application: A075141 | Product #002
Applicant: GALT PHARMACEUTICALS LLC
Approved: May 29, 1998 | RLD: No | RS: Yes | Type: RX